FAERS Safety Report 22094011 (Version 1)
Quarter: 2023Q1

REPORT INFORMATION
  Report Type: Spontaneous
  Country: US (occurrence: None)
  Receive Date: 20230314
  Receipt Date: 20230314
  Transmission Date: 20230418
  Serious: Yes (Disabling)
  Sender: FDA-Public Use
  Company Number: None

PATIENT
  Age: 76 Year
  Sex: Female
  Weight: 61.65 kg

DRUGS (18)
  1. KETOROLAC [Suspect]
     Active Substance: KETOROLAC TROMETHAMINE
     Indication: Cataract operation
     Dosage: FREQUENCY : 4 TIMES A DAY;?
     Route: 047
     Dates: start: 20230202, end: 20230205
  2. PROLENSA [Suspect]
     Active Substance: BROMFENAC SODIUM
  3. OFLOXACIN [Concomitant]
     Active Substance: OFLOXACIN
  4. Polytrim eye drops [Concomitant]
  5. CIPROFLOXACIN [Concomitant]
     Active Substance: CIPROFLOXACIN
  6. PREDNISOLONE [Concomitant]
     Active Substance: PREDNISOLONE
  7. HYDROCHLOROTHIAZIDE [Concomitant]
     Active Substance: HYDROCHLOROTHIAZIDE
  8. PYRIDOXINE HYDROCHLORIDE [Concomitant]
     Active Substance: PYRIDOXINE HYDROCHLORIDE
  9. LUTEIN [Concomitant]
     Active Substance: LUTEIN
  10. DIMETHYL SULFONE [Concomitant]
     Active Substance: DIMETHYL SULFONE
  11. Flax oil [Concomitant]
  12. POTASSIUM [Concomitant]
     Active Substance: POTASSIUM
  13. Cats claw [Concomitant]
  14. VITAMIN B12 [Concomitant]
     Active Substance: CYANOCOBALAMIN
  15. Saccharomyces bulardi [Concomitant]
  16. JWH-018 [Concomitant]
     Active Substance: JWH-018
  17. VITAMIN D3 [Concomitant]
     Active Substance: CHOLECALCIFEROL
  18. XYZAL [Concomitant]
     Active Substance: LEVOCETIRIZINE DIHYDROCHLORIDE

REACTIONS (6)
  - Eye irritation [None]
  - Ocular hyperaemia [None]
  - Lacrimation increased [None]
  - Eye pain [None]
  - Therapy change [None]
  - Condition aggravated [None]

NARRATIVE: CASE EVENT DATE: 20230202
